FAERS Safety Report 14928691 (Version 2)
Quarter: 2018Q2

REPORT INFORMATION
  Report Type: Spontaneous
  Country: US (occurrence: US)
  Receive Date: 20180523
  Receipt Date: 20180621
  Transmission Date: 20180711
  Serious: Yes (Hospitalization, Disabling, Other)
  Sender: FDA-Public Use
  Company Number: US-BIOVITRUM-2018US0567

PATIENT
  Sex: Female

DRUGS (21)
  1. ENBREL [Suspect]
     Active Substance: ETANERCEPT
  2. ONDANSETRON [Concomitant]
     Active Substance: ONDANSETRON
  3. MIRTAZAPINE. [Concomitant]
     Active Substance: MIRTAZAPINE
  4. REQUIP [Concomitant]
     Active Substance: ROPINIROLE HYDROCHLORIDE
  5. LISINOPRIL. [Concomitant]
     Active Substance: LISINOPRIL
  6. CALCIUM PLUS VITAMIN D [Concomitant]
     Active Substance: CALCIUM\VITAMIN D
  7. FOLIC ACID. [Concomitant]
     Active Substance: FOLIC ACID
  8. TYLENOL WITH CODEINE [Concomitant]
     Active Substance: ACETAMINOPHEN\CODEINE PHOSPHATE
  9. PREDNISONE. [Concomitant]
     Active Substance: PREDNISONE
  10. ORENCIA [Suspect]
     Active Substance: ABATACEPT
  11. HYDROXYCHLOROQUINE [Concomitant]
     Active Substance: HYDROXYCHLOROQUINE
  12. HYDROCODONE [Concomitant]
     Active Substance: HYDROCODONE
  13. KINERET [Suspect]
     Active Substance: ANAKINRA
  14. METHOTREXATE. [Suspect]
     Active Substance: METHOTREXATE
  15. TRAMADOL HYDROCHLORIDE AND ACETAMINOPHEN [Concomitant]
     Active Substance: ACETAMINOPHEN\TRAMADOL HYDROCHLORIDE
  16. GABAPENTIN. [Concomitant]
     Active Substance: GABAPENTIN
  17. XELJANZ [Suspect]
     Active Substance: TOFACITINIB CITRATE
  18. HUMIRA [Suspect]
     Active Substance: ADALIMUMAB
  19. PREDNISONE. [Concomitant]
     Active Substance: PREDNISONE
  20. OMEPRAZOLE. [Concomitant]
     Active Substance: OMEPRAZOLE
  21. GERITOL [Concomitant]
     Active Substance: MINERALS\VITAMINS

REACTIONS (25)
  - Spinal operation [Unknown]
  - Osteoarthritis [Unknown]
  - Cushingoid [Unknown]
  - Diarrhoea [Unknown]
  - Varicose ulceration [Unknown]
  - Spinal deformity [Unknown]
  - Dry mouth [Unknown]
  - Rhonchi [Unknown]
  - Skin disorder [Unknown]
  - Joint effusion [Unknown]
  - Grimacing [Unknown]
  - Hypergammaglobulinaemia [Unknown]
  - Drug ineffective [Unknown]
  - Bone disorder [Unknown]
  - Pain [Unknown]
  - Decubitus ulcer [Unknown]
  - Respiratory tract infection [Unknown]
  - Post procedural complication [Not Recovered/Not Resolved]
  - Lung disorder [Unknown]
  - Skin hyperpigmentation [Unknown]
  - Oedema peripheral [Unknown]
  - Decreased appetite [Unknown]
  - Nausea [Unknown]
  - Skin atrophy [Unknown]
  - Dry eye [Unknown]
